FAERS Safety Report 22174866 (Version 1)
Quarter: 2023Q2

REPORT INFORMATION
  Report Type: Spontaneous
  Country: CN (occurrence: CN)
  Receive Date: 20230405
  Receipt Date: 20230405
  Transmission Date: 20230722
  Serious: Yes (Other)
  Sender: FDA-Public Use
  Company Number: CN-BAYER-2023A041968

PATIENT
  Age: 80 Year
  Sex: Female
  Weight: 55 kg

DRUGS (4)
  1. RIVAROXABAN [Suspect]
     Active Substance: RIVAROXABAN
     Indication: Acute myocardial infarction
     Dosage: 15 MG, QD
     Route: 048
     Dates: start: 20230310, end: 20230313
  2. ASPIRIN [Suspect]
     Active Substance: ASPIRIN
     Indication: Acute myocardial infarction
     Dosage: 100 MG, QD
     Route: 048
     Dates: start: 20230307, end: 20230319
  3. CLOPIDOGREL BISULFATE [Suspect]
     Active Substance: CLOPIDOGREL BISULFATE
     Indication: Acute myocardial infarction
     Dosage: 75 MG, QD
     Route: 048
     Dates: start: 20230307, end: 20230319
  4. TIROFIBAN HYDROCHLORIDE [Concomitant]
     Active Substance: TIROFIBAN HYDROCHLORIDE
     Dosage: INTRAPUMP INJECTION
     Dates: start: 20230307, end: 20230307

REACTIONS (3)
  - Septic shock [Recovering/Resolving]
  - Prothrombin time prolonged [Recovering/Resolving]
  - Off label use [Unknown]

NARRATIVE: CASE EVENT DATE: 20230310
